FAERS Safety Report 17520424 (Version 1)
Quarter: 2020Q1

REPORT INFORMATION
  Report Type: Spontaneous
  Country: BR (occurrence: BR)
  Receive Date: 20200310
  Receipt Date: 20200310
  Transmission Date: 20200409
  Serious: Yes (Hospitalization, Other)
  Sender: FDA-Public Use
  Company Number: BR-NOVAST LABORATORIES LTD.-2020NOV000240

PATIENT
  Age: 70 Year
  Sex: Female

DRUGS (2)
  1. ACETAZOLAMIDE. [Suspect]
     Active Substance: ACETAZOLAMIDE
     Dosage: 250 MILLIGRAM, QID
     Route: 065
  2. ACETAZOLAMIDE. [Suspect]
     Active Substance: ACETAZOLAMIDE
     Indication: POSTOPERATIVE CARE
     Dosage: 500 MILLIGRAM, QID, FOR 5 DAYS
     Route: 065

REACTIONS (5)
  - Chronic kidney disease [Recovered/Resolved]
  - Metabolic acidosis [Recovered/Resolved]
  - Overdose [Unknown]
  - Product use in unapproved indication [Unknown]
  - Coma [Recovered/Resolved]
